FAERS Safety Report 8777045 (Version 7)
Quarter: 2013Q4

REPORT INFORMATION
  Report Type: Report from Study
  Country: CA (occurrence: CA)
  Receive Date: 20120911
  Receipt Date: 20131209
  Transmission Date: 20140711
  Serious: Yes (Hospitalization, Other)
  Sender: FDA-Public Use
  Company Number: PHHY2012CA078587

PATIENT
  Age: 75 Year
  Sex: Male

DRUGS (4)
  1. SANDOSTATIN LAR [Suspect]
     Indication: PANCREATIC NEUROENDOCRINE TUMOUR
     Dosage: 60 MG, ONCE A MONTH
     Route: 030
     Dates: start: 20100101
  2. SANDOSTATIN LAR [Suspect]
     Dosage: 30 MG, ONCE A MONTH
     Route: 030
  3. SANDOSTATIN LAR [Suspect]
     Dosage: 60 MG, ONCE A MONTH
     Route: 030
  4. IMODIUM [Concomitant]
     Dosage: 2 DF, PER MEAL

REACTIONS (5)
  - Campylobacter infection [Unknown]
  - Catheter site infection [Unknown]
  - Diarrhoea [Unknown]
  - Neurogenic shock [Unknown]
  - Feeling abnormal [Unknown]
